FAERS Safety Report 7025364-4 (Version None)
Quarter: 2010Q4

REPORT INFORMATION
  Report Type: 
  Country: None (occurrence: None)
  Receive Date: 20101001
  Receipt Date: 20100920
  Transmission Date: 20110411
  Serious: Yes (Hospitalization)
  Sender: FDA-Public Use
  Company Number: PHHY2010US58519

PATIENT
  Sex: Female

DRUGS (8)
  1. RECLAST [Suspect]
     Indication: OSTEOPENIA
     Dosage: 5 MG EVERY YEAR
     Dates: start: 20100824, end: 20100824
  2. LOTENSIN [Concomitant]
     Indication: HYPERTENSION
     Dosage: 20 MG DAILY
  3. ZOCOR [Concomitant]
     Indication: HYPERCHOLESTEROLAEMIA
     Dosage: 40 MG, UNK
     Dates: start: 20100816
  4. VANICAL [Concomitant]
     Indication: CONSTIPATION
     Dosage: 120 MG, TID
  5. AMBRIN [Concomitant]
     Indication: INSOMNIA
     Dosage: 10 MG QHS
  6. ZANALLEX [Concomitant]
     Indication: MUSCLE SPASMS
     Dosage: 10 MG, TID
  7. INIOR [Concomitant]
     Indication: BLOOD TRIGLYCERIDES INCREASED
     Dosage: 145 MG QD
     Dates: start: 20100816
  8. LIVAGA [Concomitant]
     Indication: BLOOD CHOLESTEROL INCREASED
     Dosage: 1 G, BID
     Dates: start: 20100816

REACTIONS (9)
  - ASTHENIA [None]
  - CEREBRAL HAEMORRHAGE [None]
  - DIPLOPIA [None]
  - ENCEPHALOMALACIA [None]
  - HAEMORRHAGE INTRACRANIAL [None]
  - HEADACHE [None]
  - MYALGIA [None]
  - TREMOR [None]
  - VERTIGO [None]
